FAERS Safety Report 10084883 (Version 2)
Quarter: 2014Q2

REPORT INFORMATION
  Report Type: Spontaneous
  Country: JP (occurrence: JP)
  Receive Date: 20140417
  Receipt Date: 20140417
  Transmission Date: 20141212
  Serious: Yes (Death, Other)
  Sender: FDA-Public Use
  Company Number: JP-CELGENEUS-087-21880-14034317

PATIENT
  Age: 75 Year
  Sex: Male
  Weight: 80 kg

DRUGS (8)
  1. REVLIMID [Suspect]
     Indication: PLASMA CELL MYELOMA
     Dosage: 25 MILLIGRAM
     Route: 048
     Dates: start: 20140110, end: 20140228
  2. LENADEX [Suspect]
     Indication: PLASMA CELL MYELOMA
     Route: 048
     Dates: start: 20140110, end: 20140228
  3. BAYASPIRIN [Concomitant]
     Indication: THROMBOSIS PROPHYLAXIS
     Dosage: 100 MILLIGRAM
     Route: 048
     Dates: start: 20140110, end: 20140228
  4. BAKTAR [Concomitant]
     Indication: INFECTION PROPHYLAXIS
     Route: 048
     Dates: end: 20140228
  5. URINORM [Concomitant]
     Indication: PRODUCT USED FOR UNKNOWN INDICATION
     Dosage: 50 MILLIGRAM
     Route: 048
     Dates: end: 20140228
  6. PINALOC [Concomitant]
     Indication: PRODUCT USED FOR UNKNOWN INDICATION
     Route: 048
     Dates: end: 20140228
  7. ZOVIRAX [Concomitant]
     Indication: ANTIVIRAL PROPHYLAXIS
     Dosage: 200 MILLIGRAM
     Route: 048
     Dates: start: 20140110, end: 20140228
  8. RED BLOOD CELLS [Concomitant]
     Indication: ANAEMIA
     Route: 041

REACTIONS (7)
  - Venous thrombosis limb [Fatal]
  - Pulmonary embolism [Fatal]
  - Anaemia [Not Recovered/Not Resolved]
  - Renal impairment [Unknown]
  - Rash [Recovering/Resolving]
  - Oedema [Recovered/Resolved]
  - Dehydration [Unknown]
